FAERS Safety Report 8595780 (Version 4)
Quarter: 2014Q1

REPORT INFORMATION
  Report Type: Spontaneous
  Country: US (occurrence: US)
  Receive Date: 20120605
  Receipt Date: 20140128
  Transmission Date: 20141002
  Serious: Yes (Hospitalization, Disabling, Other)
  Sender: FDA-Public Use
  Company Number: US-ASTRAZENECA-2012SE35589

PATIENT
  Age: 16890 Day
  Sex: Female
  Weight: 49.9 kg

DRUGS (22)
  1. NEXIUM [Suspect]
     Indication: CROHN^S DISEASE
     Dosage: ONE
     Route: 048
     Dates: start: 2004, end: 2010
  2. NEXIUM [Suspect]
     Indication: CROHN^S DISEASE
     Dosage: ONE
     Route: 048
     Dates: start: 2004, end: 2010
  3. NEXIUM [Suspect]
     Indication: DYSPHAGIA
     Dosage: ONE
     Route: 048
     Dates: start: 2004, end: 2010
  4. NEXIUM [Suspect]
     Indication: ENTERITIS
     Dosage: ONE
     Route: 048
     Dates: start: 2004, end: 2010
  5. NEXIUM [Suspect]
     Indication: CROHN^S DISEASE
     Route: 048
     Dates: start: 20040121
  6. NEXIUM [Suspect]
     Indication: CROHN^S DISEASE
     Route: 048
     Dates: start: 20040121
  7. NEXIUM [Suspect]
     Indication: DYSPHAGIA
     Route: 048
     Dates: start: 20040121
  8. NEXIUM [Suspect]
     Indication: ENTERITIS
     Route: 048
     Dates: start: 20040121
  9. NEXIUM [Suspect]
     Indication: CROHN^S DISEASE
     Route: 048
     Dates: start: 2008
  10. NEXIUM [Suspect]
     Indication: CROHN^S DISEASE
     Route: 048
     Dates: start: 2008
  11. NEXIUM [Suspect]
     Indication: DYSPHAGIA
     Route: 048
     Dates: start: 2008
  12. NEXIUM [Suspect]
     Indication: ENTERITIS
     Route: 048
     Dates: start: 2008
  13. HYDROCODONE [Concomitant]
  14. CALCIUM [Concomitant]
  15. VITAMIN D [Concomitant]
  16. HYDROCODONE/ACETAMINOPHEN [Concomitant]
     Dates: start: 20000414
  17. PREDNISONE [Concomitant]
     Dates: start: 20000405
  18. PROMETHAZINE [Concomitant]
     Dates: start: 20050909
  19. AMITRIPTYLINE HCL [Concomitant]
     Dates: start: 20040121
  20. OMEPRAZOLE [Concomitant]
     Dates: start: 20080919
  21. XANAX [Concomitant]
  22. PRAVACHOL [Concomitant]

REACTIONS (16)
  - Impaired work ability [Unknown]
  - Spinal osteoarthritis [Unknown]
  - Foot fracture [Unknown]
  - Upper limb fracture [Unknown]
  - Spinal cord compression [Unknown]
  - Osteoporosis [Unknown]
  - Bone disorder [Unknown]
  - Multiple fractures [Unknown]
  - Carpal tunnel syndrome [Unknown]
  - Ankle fracture [Unknown]
  - Calcium deficiency [Unknown]
  - Arthritis [Unknown]
  - Rheumatoid arthritis [Unknown]
  - Intervertebral disc degeneration [Unknown]
  - Cervical radiculopathy [Unknown]
  - Vertebral foraminal stenosis [Unknown]
